FAERS Safety Report 6895703-3 (Version None)
Quarter: 2010Q3

REPORT INFORMATION
  Report Type: 
  Country: None (occurrence: None)
  Receive Date: 20100802
  Receipt Date: 20100726
  Transmission Date: 20110219
  Serious: Yes (Other)
  Sender: FDA-Public Use
  Company Number: DE-JNJFOC-20100603366

PATIENT
  Age: 29 Year
  Sex: Male
  Weight: 80 kg

DRUGS (16)
  1. RISPERDAL [Suspect]
     Indication: PRODUCT USED FOR UNKNOWN INDICATION
     Route: 048
     Dates: start: 20091026
  2. RISPERDAL [Suspect]
     Route: 048
     Dates: start: 20091026
  3. RISPERDAL [Suspect]
     Route: 048
     Dates: start: 20091026
  4. RISPERDAL [Suspect]
     Route: 048
     Dates: start: 20091026
  5. RISPERDAL [Suspect]
     Route: 048
     Dates: start: 20091026
  6. RISPERDAL [Suspect]
     Route: 048
     Dates: start: 20091026
  7. SEROQUEL [Suspect]
     Indication: PRODUCT USED FOR UNKNOWN INDICATION
     Route: 048
     Dates: start: 20091202, end: 20100113
  8. SEROQUEL [Suspect]
     Route: 048
     Dates: start: 20091202, end: 20100113
  9. SEROQUEL [Suspect]
     Route: 048
     Dates: start: 20091202, end: 20100113
  10. SEROQUEL [Suspect]
     Route: 048
     Dates: start: 20091202, end: 20100113
  11. SEROQUEL [Suspect]
     Route: 048
     Dates: start: 20091202, end: 20100113
  12. SEROQUEL [Suspect]
     Route: 048
     Dates: start: 20091202, end: 20100113
  13. TRUXAL [Suspect]
     Indication: PRODUCT USED FOR UNKNOWN INDICATION
     Route: 048
     Dates: start: 20091026, end: 20091228
  14. VENLAFAXINE [Concomitant]
     Indication: PRODUCT USED FOR UNKNOWN INDICATION
     Route: 048
  15. VENLAFAXINE [Concomitant]
     Route: 048
  16. PANTOZOL [Concomitant]
     Route: 048
     Dates: start: 20091211, end: 20100104

REACTIONS (2)
  - BLOOD GLUCOSE FLUCTUATION [None]
  - WEIGHT INCREASED [None]
